FAERS Safety Report 13373065 (Version 1)
Quarter: 2017Q1

REPORT INFORMATION
  Report Type: Spontaneous
  Country: US (occurrence: US)
  Receive Date: 20170327
  Receipt Date: 20170327
  Transmission Date: 20170429
  Serious: Yes (Other)
  Sender: FDA-Public Use
  Company Number: US-JNJCP-30000376864

PATIENT
  Age: 59 Year
  Sex: Female
  Weight: 91 kg

DRUGS (6)
  1. GENTLE DAILY CLEANSER [Concomitant]
     Active Substance: COSMETICS
     Indication: REMOVAL OF INERT MATTER FROM SKIN OR SUBCUTANEOUS TISSUE
     Dosage: ONCE
     Route: 061
  2. NEUTROGENA RAPID TONE REPAIR SUNSCREEN SPF30 [Suspect]
     Active Substance: AVOBENZONE\HOMOSALATE\OCTISALATE\OCTOCRYLENE
     Indication: SKIN WRINKLING
     Dosage: PEARL SIZED AMOUNT TWICE
     Route: 061
     Dates: start: 20170309, end: 20170310
  3. NEUTROGENA MAKE-UP REMOVER CLEANSING TOWLETTES [Suspect]
     Active Substance: COSMETICS
     Dosage: ONE TOWLETTE ONCE
     Route: 061
     Dates: start: 20170309, end: 20170309
  4. NEUTROGENA OIL-FREE EYE MAKEUP REMOVER [Suspect]
     Active Substance: COSMETICS
     Dosage: BIT AMOUNT ON COTTON BALL ONCE
     Route: 061
     Dates: start: 20170308, end: 20170308
  5. SOME MEDICATIONS [Concomitant]
     Indication: PRODUCT USED FOR UNKNOWN INDICATION
     Dosage: SINCE YEARS
  6. NEUTROGENA RAPID WRINKLE REPAIR REGENERATING CREAM [Suspect]
     Active Substance: COSMETICS
     Indication: SKIN WRINKLING
     Dosage: PEARL SIZED AMOUNT ONE TIME PER DAY
     Route: 061
     Dates: start: 20170308, end: 20170309

REACTIONS (8)
  - Skin wrinkling [Not Recovered/Not Resolved]
  - Application site irritation [Recovering/Resolving]
  - Application site erosion [Not Recovered/Not Resolved]
  - Application site pain [Recovering/Resolving]
  - Eye pain [Recovering/Resolving]
  - Drug ineffective [Unknown]
  - Application site swelling [Recovering/Resolving]
  - Ocular hyperaemia [Recovering/Resolving]

NARRATIVE: CASE EVENT DATE: 20170309
